FAERS Safety Report 23492954 (Version 2)
Quarter: 2024Q1

REPORT INFORMATION
  Report Type: Spontaneous
  Country: PL (occurrence: PL)
  Receive Date: 20240207
  Receipt Date: 20240214
  Transmission Date: 20240410
  Serious: Yes (Hospitalization, Other)
  Sender: FDA-Public Use
  Company Number: PL-UCBSA-2024005709

PATIENT
  Age: 6 Year
  Sex: Male

DRUGS (1)
  1. FINTEPLA [Suspect]
     Active Substance: FENFLURAMINE
     Indication: Severe myoclonic epilepsy of infancy
     Dosage: UNK
     Dates: start: 202401

REACTIONS (3)
  - Heart rate decreased [Unknown]
  - Oxygen saturation decreased [Unknown]
  - Seizure [Unknown]

NARRATIVE: CASE EVENT DATE: 20240101
